FAERS Safety Report 6808135-0 (Version None)
Quarter: 2010Q2

REPORT INFORMATION
  Report Type: 
  Country: None (occurrence: None)
  Receive Date: 20100629
  Receipt Date: 20090512
  Transmission Date: 20101027
  Serious: No
  Sender: FDA-Public Use
  Company Number: US-PFIZER INC-2009178521

PATIENT
  Sex: Female
  Weight: 63.492 kg

DRUGS (9)
  1. TIKOSYN [Suspect]
     Dosage: 250 UG, 1X/DAY
     Dates: start: 20090101
  2. SYNTHROID [Concomitant]
     Dosage: UNK UG, WEEKLY
  3. LASIX [Concomitant]
     Dosage: 20 MG, 1X/DAY
  4. CALCIUM WITH VITAMIN D [Concomitant]
     Dosage: 1 DF, 1X/DAY
  5. ATACAND [Concomitant]
  6. CALCIUM W/MAGNESIUM [Concomitant]
     Dosage: 250 MG, 1X/DAY
  7. WARFARIN [Concomitant]
  8. COREG [Concomitant]
     Dosage: 40 MG, 1X/DAY
  9. LANOXIN [Concomitant]
     Dosage: 0.25 MG, 1X/DAY

REACTIONS (3)
  - ARTHRITIS [None]
  - FATIGUE [None]
  - MALAISE [None]
